FAERS Safety Report 8970770 (Version 1)
Quarter: 2012Q4

REPORT INFORMATION
  Report Type: 
  Country: FR (occurrence: FR)
  Receive Date: 20121218
  Receipt Date: 20121218
  Transmission Date: 20130627
  Serious: Yes (Hospitalization)
  Sender: FDA-Public Use
  Company Number: FR-009507513-1110FRA00056

PATIENT
  Age: 82 Year
  Sex: Female

DRUGS (13)
  1. XELEVIA [Suspect]
     Route: 048
     Dates: end: 20110808
  2. ARICEPT [Suspect]
     Dosage: 10  mg, qd
     Route: 048
     Dates: start: 201002, end: 20110823
  3. COUMADIN [Concomitant]
     Dosage: 0.5  mg, UNK
     Route: 048
     Dates: end: 20110829
  4. CRESTOR [Concomitant]
     Dosage: 10 mg, qd
     Route: 048
     Dates: end: 20110829
  5. DOMPERIDONE [Concomitant]
     Dosage: UNK UNK, tid
     Route: 048
     Dates: start: 201105, end: 20110829
  6. APROVEL [Concomitant]
  7. SOTALOL HYDROCHLORIDE [Concomitant]
  8. TARDYFERON [Concomitant]
  9. STABLON [Suspect]
     Dosage: 12.5 mg, bid
     Route: 048
     Dates: start: 201106, end: 20110829
  10. INEXIUM [Suspect]
     Dosage: 20  mg, qd
     Route: 048
     Dates: end: 20110829
  11. METFORMIN [Suspect]
     Route: 048
     Dates: end: 20110808
  12. LANTUS [Concomitant]
  13. FUROSEMIDE [Suspect]
     Route: 048
     Dates: end: 20110808

REACTIONS (2)
  - Hepatitis [Recovered/Resolved]
  - Cholelithiasis [Unknown]
